FAERS Safety Report 7310262-9 (Version None)
Quarter: 2011Q1

REPORT INFORMATION
  Report Type: 
  Country: None (occurrence: None)
  Receive Date: 20110224
  Receipt Date: 20110216
  Transmission Date: 20110831
  Serious: Yes (Hospitalization)
  Sender: FDA-Public Use
  Company Number: US-US-EMD SERONO, INC.-7037087

PATIENT
  Sex: Female

DRUGS (1)
  1. REBIF [Suspect]
     Indication: PRODUCT USED FOR UNKNOWN INDICATION
     Route: 058
     Dates: start: 20070501

REACTIONS (6)
  - NASOPHARYNGITIS [None]
  - HEART RATE INCREASED [None]
  - MULTIPLE SCLEROSIS RELAPSE [None]
  - THYROID NEOPLASM [None]
  - PYREXIA [None]
  - BLOOD PRESSURE FLUCTUATION [None]
